FAERS Safety Report 7254036-6 (Version None)
Quarter: 2011Q1

REPORT INFORMATION
  Report Type: 
  Country: None (occurrence: None)
  Receive Date: 20110129
  Receipt Date: 20100407
  Transmission Date: 20110831
  Serious: No
  Sender: FDA-Public Use
  Company Number: US-ABBOTT-10P-163-0633594-00

PATIENT
  Sex: Female
  Weight: 54.48 kg

DRUGS (13)
  1. REMERON [Concomitant]
     Indication: DEPRESSION
  2. MERCAPTOPURINE [Concomitant]
     Indication: CROHN'S DISEASE
  3. HUMIRA [Suspect]
     Indication: FISTULA
     Dates: start: 20090601
  4. VICODIN [Concomitant]
     Indication: PAIN MANAGEMENT
  5. AMBIEN [Concomitant]
     Indication: INSOMNIA
  6. CIPRO [Concomitant]
     Indication: CROHN'S DISEASE
  7. LYRICA [Concomitant]
     Indication: FIBROMYALGIA
  8. FLAGYL [Concomitant]
     Indication: CROHN'S DISEASE
  9. XANAX [Concomitant]
     Indication: ANXIETY
  10. FLAGYL [Concomitant]
     Indication: FISTULA
  11. CIPRO [Concomitant]
     Indication: FISTULA
  12. HUMIRA [Suspect]
     Indication: CROHN'S DISEASE
     Dates: start: 20090401, end: 20090601
  13. MERCAPTOPURINE [Concomitant]
     Indication: FISTULA

REACTIONS (3)
  - INJECTION SITE PAIN [None]
  - DRUG INEFFECTIVE [None]
  - INJECTION SITE SWELLING [None]
